FAERS Safety Report 10249989 (Version 1)
Quarter: 2014Q2

REPORT INFORMATION
  Report Type: Spontaneous
  Country: PE (occurrence: PE)
  Receive Date: 20140620
  Receipt Date: 20140620
  Transmission Date: 20141212
  Serious: Yes (Other)
  Sender: FDA-Public Use
  Company Number: PE-PFIZER INC-2014165871

PATIENT
  Age: 87 Year
  Sex: Female

DRUGS (1)
  1. LYRICA [Suspect]
     Dosage: 75 MG, 1X/DAY, AT NIGHT
     Route: 048

REACTIONS (2)
  - Poisoning [Unknown]
  - Vomiting [Unknown]
